FAERS Safety Report 15569478 (Version 1)
Quarter: 2018Q4

REPORT INFORMATION
  Report Type: Spontaneous
  Country: US (occurrence: US)
  Receive Date: 20181030
  Receipt Date: 20181030
  Transmission Date: 20190205
  Serious: Yes (Disabling)
  Sender: FDA-Public Use
  Company Number: None

PATIENT
  Age: 52 Year
  Sex: Male
  Weight: 76.5 kg

DRUGS (4)
  1. TRIAMCINOLONE ACETOMIDECREAM USP 0.1% [Suspect]
     Active Substance: TRIAMCINOLONE ACETONIDE
     Indication: FUNGAL INFECTION
     Dosage: ?          QUANTITY:454 TUB;?
     Route: 061
     Dates: start: 20160630, end: 20170630
  2. MULTIVITAMIN [Concomitant]
     Active Substance: VITAMINS
  3. VITAMIN E [Concomitant]
     Active Substance: .ALPHA.-TOCOPHEROL
  4. FISH OIL [Concomitant]
     Active Substance: FISH OIL

REACTIONS (13)
  - Pruritus [None]
  - Application site vesicles [None]
  - Urticaria [None]
  - Adverse food reaction [None]
  - Cardiovascular disorder [None]
  - Application site swelling [None]
  - Joint range of motion decreased [None]
  - Peripheral swelling [None]
  - Dermatitis allergic [None]
  - Wound secretion [None]
  - Sleep deficit [None]
  - Skin exfoliation [None]
  - Injury [None]

NARRATIVE: CASE EVENT DATE: 20170601
